FAERS Safety Report 9706866 (Version 1)
Quarter: 2013Q4

REPORT INFORMATION
  Report Type: Spontaneous
  Country: IL (occurrence: IL)
  Receive Date: 20131125
  Receipt Date: 20131125
  Transmission Date: 20140711
  Serious: Yes (Hospitalization, Other)
  Sender: FDA-Public Use
  Company Number: IL-JNJFOC-20131111116

PATIENT
  Age: 43 Year
  Sex: Male

DRUGS (2)
  1. REMICADE [Suspect]
     Indication: COLITIS ULCERATIVE
     Dosage: FIRST ADMINISTRATION
     Route: 042
  2. REMICADE [Suspect]
     Indication: COLITIS ULCERATIVE
     Dosage: SECOND ADMINISTRATION
     Route: 042

REACTIONS (5)
  - Asphyxia [Unknown]
  - Infusion related reaction [Unknown]
  - Erythema [Unknown]
  - Chills [Unknown]
  - Pyrexia [Unknown]
